FAERS Safety Report 5981251-1 (Version None)
Quarter: 2008Q4

REPORT INFORMATION
  Report Type: 
  Country: None (occurrence: None)
  Receive Date: 20081205
  Receipt Date: 20081201
  Transmission Date: 20090506
  Serious: Yes (Other)
  Sender: FDA-Public Use
  Company Number: ES-SANOFI-SYNTHELABO-A01200815560

PATIENT
  Age: 31 Year
  Sex: Female

DRUGS (3)
  1. ANTIBIOTICS [Concomitant]
     Indication: PNEUMONIA
  2. ANTIBIOTICS [Concomitant]
     Indication: URINARY TRACT INFECTION
  3. METRONIDAZOLE [Suspect]
     Indication: CLOSTRIDIUM DIFFICILE COLITIS
     Route: 048

REACTIONS (1)
  - PANCREATITIS [None]
